FAERS Safety Report 9118984 (Version 1)
Quarter: 2013Q1

REPORT INFORMATION
  Report Type: Spontaneous
  Country: US (occurrence: None)
  Receive Date: 20130221
  Receipt Date: 20130221
  Transmission Date: 20140127
  Serious: Yes (Other)
  Sender: FDA-Public Use
  Company Number: None

PATIENT
  Age: 49 Year
  Sex: Female
  Weight: 97.52 kg

DRUGS (2)
  1. MOBIC [Suspect]
     Indication: ARTHRITIS
     Dosage: 7.5 MG 2 TIMES PER DAY PO
     Route: 048
     Dates: start: 20040701, end: 20061201
  2. MOBIC [Suspect]
     Indication: FIBROMYALGIA
     Dosage: 7.5 MG 2 TIMES PER DAY PO
     Route: 048
     Dates: start: 20040701, end: 20061201

REACTIONS (4)
  - Rectal haemorrhage [None]
  - Hypertension [None]
  - Anaemia [None]
  - Pain [None]
